FAERS Safety Report 17287183 (Version 1)
Quarter: 2020Q1

REPORT INFORMATION
  Report Type: Spontaneous
  Country: US (occurrence: US)
  Receive Date: 20191230
  Receipt Date: 20191230
  Transmission Date: 20200409
  Serious: No
  Sender: FDA-Public Use
  Company Number: None

PATIENT
  Age: 83 Year
  Sex: Female
  Weight: 81.65 kg

DRUGS (16)
  1. MILK THISTLE [Concomitant]
     Active Substance: DIETARY SUPPLEMENT\HERBALS\MILK THISTLE
  2. SPIRONOLACTONE. [Concomitant]
     Active Substance: SPIRONOLACTONE
  3. VITAMINS: MULTI [Concomitant]
  4. DILTIAZEM CD 240MG OCEANSIDE [Suspect]
     Active Substance: DILTIAZEM
     Indication: HYPERTENSION
     Dosage: ?          QUANTITY:2 DF DOSAGE FORM;?
     Route: 048
     Dates: start: 20191209
  5. PROVACOL [Concomitant]
  6. VITAMIN C [Concomitant]
     Active Substance: ASCORBIC ACID
  7. GLUCLOSIMINE/CONDROYTON [Concomitant]
  8. VITAMIN E [Concomitant]
     Active Substance: .ALPHA.-TOCOPHEROL
  9. PERSERVISION [Concomitant]
  10. COZAAR [Concomitant]
     Active Substance: LOSARTAN POTASSIUM
  11. OMOPRAZOLE [Concomitant]
  12. TUSSON EX [Concomitant]
  13. GENERIC FOR VALIUM [Concomitant]
     Active Substance: DIAZEPAM
  14. CARDIZEM [Concomitant]
     Active Substance: DILTIAZEM HYDROCHLORIDE
  15. CALCIUM [Concomitant]
     Active Substance: CALCIUM
  16. FISH OIL [Concomitant]
     Active Substance: FISH OIL

REACTIONS (3)
  - Rash morbilliform [None]
  - Rash [None]
  - Product quality issue [None]

NARRATIVE: CASE EVENT DATE: 20191209
